FAERS Safety Report 19698392 (Version 1)
Quarter: 2021Q3

REPORT INFORMATION
  Report Type: Spontaneous
  Country: US (occurrence: US)
  Receive Date: 20210813
  Receipt Date: 20210813
  Transmission Date: 20211014
  Serious: Yes (Life-Threatening, Hospitalization, Disabling, Other)
  Sender: FDA-Public Use
  Company Number: None

PATIENT
  Age: 30 Year
  Sex: Female
  Weight: 40.82 kg

DRUGS (3)
  1. METOPROLOL SUCC [Concomitant]
     Active Substance: METOPROLOL SUCCINATE
  2. DILTIAZEM 24 H ER [Concomitant]
  3. NEXPLANON [Suspect]
     Active Substance: ETONOGESTREL
     Dates: start: 20190909

REACTIONS (3)
  - Supraventricular tachycardia [None]
  - Pain in extremity [None]
  - Palpitations [None]
